FAERS Safety Report 12651650 (Version 1)
Quarter: 2016Q3

REPORT INFORMATION
  Report Type: Spontaneous
  Country: US (occurrence: US)
  Receive Date: 20160815
  Receipt Date: 20160815
  Transmission Date: 20161109
  Serious: Yes (Other)
  Sender: FDA-Public Use
  Company Number: US-MALLINCKRODT-T201603637

PATIENT
  Sex: Female
  Weight: 11 kg

DRUGS (6)
  1. HEPARIN [Concomitant]
     Active Substance: HEPARIN SODIUM
     Indication: ANTICOAGULANT THERAPY
     Dosage: 1590 UNITS OF HEPARIN IN 500ML NORMAL SALINE
     Dates: start: 20160726, end: 20160726
  2. MORPHINE [Concomitant]
     Active Substance: MORPHINE
  3. UVADEX [Suspect]
     Active Substance: METHOXSALEN
     Indication: GRAFT VERSUS HOST DISEASE
     Dosage: UNK
     Dates: start: 20160726, end: 20160726
  4. UVADEX [Suspect]
     Active Substance: METHOXSALEN
     Dosage: UNK
     Dates: start: 20160729, end: 20160729
  5. HEPARIN [Concomitant]
     Active Substance: HEPARIN SODIUM
     Dosage: 1590 UNITS OF HEPARIN IN 500ML NORMAL SALINE
     Dates: start: 20160729, end: 20160729
  6. LASIX [Concomitant]
     Active Substance: FUROSEMIDE

REACTIONS (4)
  - Hypotension [Recovered/Resolved]
  - Device related infection [Recovered/Resolved]
  - Off label use [Unknown]
  - Tachycardia [Recovered/Resolved]
